FAERS Safety Report 16707326 (Version 1)
Quarter: 2019Q3

REPORT INFORMATION
  Report Type: Spontaneous
  Country: US (occurrence: US)
  Receive Date: 20190815
  Receipt Date: 20190815
  Transmission Date: 20191004
  Serious: No
  Sender: FDA-Public Use
  Company Number: US-AMGEN-USASP2019127958

PATIENT
  Age: 93 Year
  Sex: Male

DRUGS (2)
  1. PROCRIT [Suspect]
     Active Substance: ERYTHROPOIETIN
     Dosage: 40000 UNIT
     Route: 065
     Dates: start: 201903
  2. PROCRIT [Suspect]
     Active Substance: ERYTHROPOIETIN
     Indication: ANAEMIA
     Dosage: 40000 UNIT
     Route: 065
     Dates: start: 201811, end: 201903

REACTIONS (7)
  - Condition aggravated [Not Recovered/Not Resolved]
  - Myalgia [Not Recovered/Not Resolved]
  - Adverse reaction [Recovered/Resolved]
  - Influenza like illness [Not Recovered/Not Resolved]
  - Arthralgia [Not Recovered/Not Resolved]
  - Dyspnoea [Not Recovered/Not Resolved]
  - Gait inability [Not Recovered/Not Resolved]

NARRATIVE: CASE EVENT DATE: 2019
